FAERS Safety Report 6151073-X (Version None)
Quarter: 2009Q2

REPORT INFORMATION
  Report Type: 
  Country: None (occurrence: None)
  Receive Date: 20090410
  Receipt Date: 20090331
  Transmission Date: 20091009
  Serious: Yes (Hospitalization, Other)
  Sender: FDA-Public Use
  Company Number: FR-JNJFOC-20090400340

PATIENT
  Age: 91 Year
  Sex: Female

DRUGS (11)
  1. OFLOXACIN [Suspect]
     Indication: BRONCHITIS
     Route: 048
     Dates: start: 20090103, end: 20090108
  2. PNEUMOREL [Suspect]
     Indication: BRONCHITIS
     Route: 048
     Dates: start: 20090103, end: 20090108
  3. ZYLORIC [Concomitant]
     Route: 048
  4. ENALAPRIL MALEATE AND HYDROCHLOROTHIAZIDE [Concomitant]
     Route: 048
  5. EBIXA [Concomitant]
     Route: 048
  6. DILTIAZEM HYDROCHLORIDE [Concomitant]
     Route: 048
  7. ZOCOR [Concomitant]
     Route: 048
  8. TANAKAN [Concomitant]
     Route: 048
  9. PIASCLEDINE [Concomitant]
     Route: 048
  10. XALATAN [Concomitant]
     Route: 065
  11. DOLIPRANE [Concomitant]
     Route: 065

REACTIONS (5)
  - DELIRIUM [None]
  - DISORIENTATION [None]
  - FALL [None]
  - HALLUCINATIONS, MIXED [None]
  - RENAL FAILURE [None]
